FAERS Safety Report 14788739 (Version 1)
Quarter: 2018Q2

REPORT INFORMATION
  Report Type: Report from Study
  Country: KR (occurrence: KR)
  Receive Date: 20180423
  Receipt Date: 20180423
  Transmission Date: 20180711
  Serious: Yes (Other)
  Sender: FDA-Public Use
  Company Number: KR-ROCHE-2110004

PATIENT
  Age: 40 Year
  Sex: Female

DRUGS (1)
  1. TAMIFLU [Suspect]
     Active Substance: OSELTAMIVIR PHOSPHATE
     Indication: H1N1 INFLUENZA
     Dosage: FOR 5 DAY
     Route: 065

REACTIONS (3)
  - Dizziness [Unknown]
  - Vomiting [Unknown]
  - Delirium [Unknown]
